FAERS Safety Report 6095650-3 (Version None)
Quarter: 2009Q1

REPORT INFORMATION
  Report Type: 
  Country: None (occurrence: None)
  Receive Date: 20090227
  Receipt Date: 20080515
  Transmission Date: 20090719
  Serious: No
  Sender: FDA-Public Use
  Company Number: A0728098A

PATIENT
  Age: 12 Year
  Sex: Female

DRUGS (4)
  1. LAMICTAL [Suspect]
     Dosage: 200MG PER DAY
     Route: 048
  2. ADDERALL 10 [Concomitant]
  3. CLARITIN [Concomitant]
  4. SUN BATH PROTECTIVE TANNING LOTION [Concomitant]

REACTIONS (1)
  - RASH ERYTHEMATOUS [None]
